FAERS Safety Report 7160777-1 (Version None)
Quarter: 2010Q4

REPORT INFORMATION
  Report Type: 
  Country: None (occurrence: None)
  Receive Date: 20101214
  Receipt Date: 20091124
  Transmission Date: 20110411
  Serious: No
  Sender: FDA-Public Use
  Company Number: US-AMGEN-KDL376611

PATIENT

DRUGS (13)
  1. ENBREL [Suspect]
     Indication: PRODUCT USED FOR UNKNOWN INDICATION
     Dosage: 50 MG, QWK
     Route: 058
  2. SIMVASTATIN [Concomitant]
     Dosage: 20 MG, UNK
  3. CELECOXIB [Concomitant]
     Dosage: 100 MG, UNK
  4. ESTROGENS CONJUGATED [Concomitant]
     Dosage: .625 MG, UNK
  5. LEVOTHYROXINE SODIUM [Concomitant]
     Dosage: 150 A?G, UNK
  6. NASACORT AQ [Concomitant]
     Dosage: 55 A?G, UNK
  7. ACYCLOVIR [Concomitant]
     Dosage: 400 MG, UNK
  8. LAMOTRIGINE [Concomitant]
     Dosage: 100 MG, UNK
  9. OMEPRAZOLE [Concomitant]
     Dosage: 20 MG, UNK
  10. CYANOCOBALAMIN [Concomitant]
     Dosage: 1000 A?G, UNK
  11. FLUOXETINE HYDROCHLORIDE [Concomitant]
     Dosage: 40 MG, UNK
  12. LORATADINE [Concomitant]
     Dosage: 10 MG, UNK
  13. MODAFINIL [Concomitant]
     Dosage: 200 MG, UNK

REACTIONS (6)
  - APHTHOUS STOMATITIS [None]
  - GASTROINTESTINAL INFECTION [None]
  - INJECTION SITE ERYTHEMA [None]
  - INJECTION SITE RASH [None]
  - INJECTION SITE REACTION [None]
  - ORAL CANDIDIASIS [None]
